FAERS Safety Report 23484283 (Version 1)
Quarter: 2024Q1

REPORT INFORMATION
  Report Type: Report from Study
  Country: US (occurrence: US)
  Receive Date: 20240206
  Receipt Date: 20240206
  Transmission Date: 20240410
  Serious: Yes (Other)
  Sender: FDA-Public Use
  Company Number: US-ABBVIE-5617055

PATIENT
  Sex: Male

DRUGS (1)
  1. HUMIRA [Suspect]
     Active Substance: ADALIMUMAB
     Indication: Crohn^s disease
     Dosage: CITRATE FREE?40 MG FORM STRENGTH
     Route: 058
     Dates: start: 20220630

REACTIONS (2)
  - Ulcer haemorrhage [Recovering/Resolving]
  - Abdominal adhesions [Recovering/Resolving]
